FAERS Safety Report 13549008 (Version 2)
Quarter: 2017Q3

REPORT INFORMATION
  Report Type: Spontaneous
  Country: US (occurrence: US)
  Receive Date: 20170516
  Receipt Date: 20170707
  Transmission Date: 20171127
  Serious: Yes (Hospitalization)
  Sender: FDA-Public Use
  Company Number: US-PFIZER INC-2017211021

PATIENT
  Age: 52 Year
  Sex: Female
  Weight: 83 kg

DRUGS (31)
  1. METHOTREXATE. [Concomitant]
     Active Substance: METHOTREXATE
     Indication: ARTHRITIS
     Dosage: UNK, WEEKLY (2.5 MG, TAKES 7 PILL ONCE A WEEK ON THE WEEKENDS)
  2. CLONIDINE. [Concomitant]
     Active Substance: CLONIDINE
     Indication: BLOOD PRESSURE MEASUREMENT
     Dosage: 0.1 MG, 3X/DAY
  3. CARVEDILOL. [Concomitant]
     Active Substance: CARVEDILOL
     Indication: BLOOD PRESSURE MEASUREMENT
     Dosage: 6.25 MG, 2X/DAY
  4. ZYRTEC [Concomitant]
     Active Substance: CETIRIZINE HYDROCHLORIDE
     Dosage: UNK, 1X/DAY
  5. ALPRAZOLAM. [Concomitant]
     Active Substance: ALPRAZOLAM
     Indication: PANIC ATTACK
     Dosage: 0.5 MG, AS NEEDED (CAN TAKE 1, 4 TIMES A DAY)
  6. FOLIC ACID. [Concomitant]
     Active Substance: FOLIC ACID
     Dosage: 1 MG, 1X/DAY
  7. ACETAMINOPHEN W/HYDROCODONE [Concomitant]
     Active Substance: ACETAMINOPHEN\HYDROCODONE
     Indication: PAIN
     Dosage: UNK, 2X/DAY (5/325MG TAKES A TOTAL OF 8 PILLS A DAY)
     Dates: start: 201703
  8. SPIRONOLACTONE/HCTZ [Concomitant]
     Active Substance: HYDROCHLOROTHIAZIDE\SPIRONOLACTONE
     Indication: BLOOD PRESSURE MEASUREMENT
     Dosage: UNK, 1X/DAY (25-25, TAKES IT ONE TIME A DAY) (25/25 MG ONE A DAY)
  9. RANITIDINE. [Concomitant]
     Active Substance: RANITIDINE
     Indication: ABDOMINAL DISCOMFORT
     Dosage: 150 MG, 2X/DAY
     Route: 048
  10. CLONAZEPAM. [Concomitant]
     Active Substance: CLONAZEPAM
     Indication: SOMNOLENCE
     Dosage: 4 MG, 1X/DAY (TAKES 2 TABLETS AT BEDTIME) (2 MG TWO AT BEDTIME)
  11. HYDROMET [Concomitant]
     Active Substance: HOMATROPINE METHYLBROMIDE\HYDROCODONE BITARTRATE
     Indication: LUNG DISORDER
     Dosage: UNK (ONE TEASPOON EVERY 4 HOURS)
  12. BUDESONIDE. [Concomitant]
     Active Substance: BUDESONIDE
     Indication: DYSPNOEA
     Dosage: UNK UNK, DAILY (0.5 MG/2ML TWO DAILY)
  13. PREDNISONE. [Concomitant]
     Active Substance: PREDNISONE
     Dosage: 10 MG, 1X/DAY
  14. FOLIC ACID. [Concomitant]
     Active Substance: FOLIC ACID
     Indication: ARTHRITIS
     Dosage: 1 DF, DAILY
     Route: 048
  15. HYDROMET [Concomitant]
     Active Substance: HOMATROPINE METHYLBROMIDE\HYDROCODONE BITARTRATE
     Indication: COUGH
     Dosage: UNK (5CC^S EVERY 4 HOURS AROUND THE CLOCK)
     Dates: start: 1980
  16. ALBUTEROL. [Concomitant]
     Active Substance: ALBUTEROL
     Dosage: 0.61 MG, DAILY (SHORTNESS OF BREATH, LUNG CONDITION)
  17. OMEGA 3+VITAMIN D3 [Concomitant]
     Indication: DRY EYE
     Dosage: 1 DF, 4X/DAY
  18. TEMAZEPAM. [Concomitant]
     Active Substance: TEMAZEPAM
     Indication: SOMNOLENCE
     Dosage: 15 MG, 1X/DAY (1 TABLET AT NIGHT)
  19. SINGULAIR [Concomitant]
     Active Substance: MONTELUKAST SODIUM
     Indication: HYPERSENSITIVITY
     Dosage: UNK, 1X/DAY
  20. PREDNISONE. [Concomitant]
     Active Substance: PREDNISONE
     Indication: ARTHRITIS
     Dosage: 7 MG, 1X/DAY
  21. VIMOVO [Concomitant]
     Active Substance: ESOMEPRAZOLE MAGNESIUM\NAPROXEN
     Indication: ARTHRITIS
     Dosage: 500 MG, 2X/DAY
  22. XELJANZ XR [Suspect]
     Active Substance: TOFACITINIB CITRATE
     Indication: RHEUMATOID ARTHRITIS
     Dosage: 11 MG, 1X/DAY
     Route: 048
     Dates: start: 2017, end: 20170508
  23. MONTELUKAST [Concomitant]
     Active Substance: MONTELUKAST SODIUM
     Indication: HYPERSENSITIVITY
     Dosage: 10 MG, 1X/DAY
  24. ALBUTEROL. [Concomitant]
     Active Substance: ALBUTEROL
     Indication: DYSPNOEA
     Dosage: UNK UNK, 1X/DAY
  25. ALBUTEROL. [Concomitant]
     Active Substance: ALBUTEROL
     Indication: DYSPNOEA
     Dosage: UNK, 2X/DAY
  26. ERYTHROMYCIN. [Concomitant]
     Active Substance: ERYTHROMYCIN
     Indication: EYE DISCHARGE
     Dosage: UNK UNK, 1X/DAY (OINTMENT 50% AT BEDTIME AROUND THE EYE)
  27. BUDESONIDE. [Concomitant]
     Active Substance: BUDESONIDE
     Indication: LUNG DISORDER
  28. ACETAMINOPHEN W/HYDROCODONE [Concomitant]
     Active Substance: ACETAMINOPHEN\HYDROCODONE
     Dosage: UNK, 4X/DAY (5/325 MG 8 A DAY, 2 FOUR TIMES A DAY)
  29. ALREX [Concomitant]
     Active Substance: LOTEPREDNOL ETABONATE
     Indication: EYELID DISORDER
     Dosage: 2 GTT, 2X/DAY (0.20 MG EYE DROP, ONE DROP IN EACH EYE IN THE MORNING AND AT NIGHT)
  30. AMOXICILLIN. [Concomitant]
     Active Substance: AMOXICILLIN
     Indication: JOINT DISLOCATION
     Dosage: 2000 MG, AS NEEDED (500 MG 4 AT A TIME AS NEEDED)
  31. ZYRTEC [Concomitant]
     Active Substance: CETIRIZINE HYDROCHLORIDE
     Indication: HYPERSENSITIVITY
     Dosage: 10 MG, 1X/DAY

REACTIONS (8)
  - Arthropathy [Not Recovered/Not Resolved]
  - Dyspnoea [Recovering/Resolving]
  - Fall [Unknown]
  - Concussion [Recovered/Resolved]
  - Decreased appetite [Recovered/Resolved]
  - Dysgeusia [Recovered/Resolved]
  - Feeling abnormal [Unknown]
  - Respiration abnormal [Not Recovered/Not Resolved]

NARRATIVE: CASE EVENT DATE: 2017
